FAERS Safety Report 19459985 (Version 2)
Quarter: 2022Q2

REPORT INFORMATION
  Report Type: Report from Study
  Country: FR (occurrence: FR)
  Receive Date: 20210625
  Receipt Date: 20220613
  Transmission Date: 20220720
  Serious: Yes (Other)
  Sender: FDA-Public Use
  Company Number: FR-009507513-2106FRA001710

PATIENT
  Age: 75 Year
  Sex: Female
  Weight: 74 kg

DRUGS (9)
  1. ERTAPENEM [Suspect]
     Active Substance: ERTAPENEM
     Indication: Arthritis infective
     Dosage: 1 GRAM, TWO TIMES A DAY
     Route: 042
  2. ERTAPENEM [Suspect]
     Active Substance: ERTAPENEM
     Indication: Enterobacter infection
     Dosage: 3 GRAM, EVERY WEEK
     Route: 058
  3. ERTAPENEM [Suspect]
     Active Substance: ERTAPENEM
     Dosage: 1 GRAM, ONCE A DAY (ON MONDAY AND WEDNESDAY)
     Route: 058
  4. ERTAPENEM [Suspect]
     Active Substance: ERTAPENEM
     Dosage: 2 GRAM (ON FRIDAY)
     Route: 058
  5. IMIPENEM AND CILASTATIN [Suspect]
     Active Substance: CILASTATIN SODIUM\IMIPENEM
     Indication: Arthritis infective
     Dosage: UNK
     Route: 042
  6. IMIPENEM AND CILASTATIN [Suspect]
     Active Substance: CILASTATIN SODIUM\IMIPENEM
     Indication: Enterobacter infection
  7. CIPROFLOXACIN [Concomitant]
     Active Substance: CIPROFLOXACIN
     Indication: Arthritis infective
     Dosage: UNK
     Route: 048
  8. FLUCONAZOLE [Concomitant]
     Active Substance: FLUCONAZOLE
     Indication: Arthritis infective
     Dosage: UNK
     Route: 048
  9. SALINE [Concomitant]
     Active Substance: SODIUM CHLORIDE
     Indication: Enterobacter infection
     Dosage: 50 MILLILITER
     Route: 065

REACTIONS (3)
  - Pathogen resistance [Unknown]
  - Off label use [Unknown]
  - Treatment failure [Unknown]
